FAERS Safety Report 16225727 (Version 1)
Quarter: 2019Q2

REPORT INFORMATION
  Report Type: Spontaneous
  Country: DK (occurrence: DK)
  Receive Date: 20190422
  Receipt Date: 20190422
  Transmission Date: 20190711
  Serious: Yes (Life-Threatening)
  Sender: FDA-Public Use
  Company Number: DK-TEVA-2019-DK-1039965

PATIENT
  Age: 48 Year
  Sex: Male

DRUGS (1)
  1. LAMOTRIGIN ^TEVA^ [Suspect]
     Active Substance: LAMOTRIGINE
     Indication: EPILEPSY
     Dosage: 100 MILLIGRAM DAILY; STRENGTH: 100 MG.
     Route: 048
     Dates: start: 20190220, end: 20190325

REACTIONS (4)
  - Oral mucosal exfoliation [Not Recovered/Not Resolved]
  - Stevens-Johnson syndrome [Not Recovered/Not Resolved]
  - Rash [Not Recovered/Not Resolved]
  - C-reactive protein increased [Unknown]

NARRATIVE: CASE EVENT DATE: 201903
